FAERS Safety Report 7555540-3 (Version None)
Quarter: 2011Q2

REPORT INFORMATION
  Report Type: 
  Country: None (occurrence: None)
  Receive Date: 20110617
  Receipt Date: 20031003
  Transmission Date: 20111010
  Serious: Yes (Other)
  Sender: FDA-Public Use
  Company Number: PHEH2003US09174

PATIENT
  Sex: Female

DRUGS (2)
  1. PREVACID [Concomitant]
     Dosage: UNK
  2. EXELON [Suspect]
     Indication: AMNESIA
     Dosage: 1.5 MG, BID
     Route: 048
     Dates: start: 20030221

REACTIONS (2)
  - EYELID PTOSIS [None]
  - MUSCULAR WEAKNESS [None]
